FAERS Safety Report 13726431 (Version 5)
Quarter: 2018Q4

REPORT INFORMATION
  Report Type: Spontaneous
  Country: PR (occurrence: US)
  Receive Date: 20170706
  Receipt Date: 20181030
  Transmission Date: 20190204
  Serious: No
  Sender: FDA-Public Use
  Company Number: PR-PFIZER INC-2017290496

PATIENT
  Age: 55 Year
  Sex: Female

DRUGS (5)
  1. DOCETAXEL. [Suspect]
     Active Substance: DOCETAXEL
     Indication: BREAST CANCER FEMALE
     Dosage: 10 MG/ML, EVERY 3 WEEKS (FOUR CYCLES)
     Dates: start: 20140820, end: 20141023
  2. CYTOXAN [Concomitant]
     Active Substance: CYCLOPHOSPHAMIDE
     Indication: CHEMOTHERAPY
     Dosage: UNK
  3. LIPITOR [Concomitant]
     Active Substance: ATORVASTATIN CALCIUM
     Dosage: UNK
     Dates: start: 201401
  4. TAXOTERE [Concomitant]
     Active Substance: DOCETAXEL
     Indication: CHEMOTHERAPY
     Dosage: UNK
  5. NEOSAR [Concomitant]
     Active Substance: CYCLOPHOSPHAMIDE
     Indication: CHEMOTHERAPY
     Dosage: UNK

REACTIONS (5)
  - Hair disorder [Not Recovered/Not Resolved]
  - Madarosis [Not Recovered/Not Resolved]
  - Alopecia [Not Recovered/Not Resolved]
  - Hair texture abnormal [Not Recovered/Not Resolved]
  - Hair colour changes [Not Recovered/Not Resolved]

NARRATIVE: CASE EVENT DATE: 20140820
